FAERS Safety Report 10236659 (Version 1)
Quarter: 2014Q1

REPORT INFORMATION
  Report Type: Spontaneous
  Country: US (occurrence: None)
  Receive Date: 20140306
  Receipt Date: 20140306
  Transmission Date: 20141002
  Serious: Yes (Disabling)
  Sender: FDA-Public Use
  Company Number: 163-21880-13082021

PATIENT
  Age: 76 Year
  Sex: Female

DRUGS (8)
  1. REVLIMID (LENALIDOMIDE) [Suspect]
     Indication: PLASMA CELL MYELOMA
     Dates: start: 20100715
  2. ASA (ACETYLSALICYLIC ACID) [Concomitant]
  3. IRBESARTAN [Concomitant]
  4. METOPROLOL [Concomitant]
  5. PRAVASTATIN [Concomitant]
  6. SYNTHROID (LEVOTHYROXINE SODIUM) [Concomitant]
  7. LEVOXYL (LEVOTHYROXINE SODIUM) [Concomitant]
  8. LASIX (FUROSEMIDE) [Concomitant]

REACTIONS (1)
  - Neuropathy peripheral [None]
